FAERS Safety Report 9967772 (Version 1)
Quarter: 2014Q1

REPORT INFORMATION
  Report Type: Report from Study
  Country: US (occurrence: US)
  Receive Date: 20140306
  Receipt Date: 20140306
  Transmission Date: 20141002
  Serious: No
  Sender: FDA-Public Use
  Company Number: US-ABBVIE-13P-163-1138262-00

PATIENT
  Age: 51 Year
  Sex: Female

DRUGS (7)
  1. HUMIRA [Suspect]
     Indication: PSORIASIS
     Dosage: ON WEDNESDAY
     Dates: start: 20130626
  2. SIMVASTATIN [Concomitant]
     Indication: PRODUCT USED FOR UNKNOWN INDICATION
     Dosage: BEEN ON IT FOR 4 YEARS
  3. MOBIC [Concomitant]
     Indication: ARTHRITIS
     Dosage: 15 MG EVERY DAY, BEEN ON IT FOR 2 YEARS
  4. TOPROL [Concomitant]
     Indication: ATRIAL FIBRILLATION
     Dosage: BEEN ON IT FOR 11 YEARS.
  5. FLECAINIDE [Concomitant]
     Indication: ATRIAL FIBRILLATION
     Dosage: BEEN ON IT FOR 11 YEARS.
  6. LEVOTHYROXINE [Concomitant]
     Indication: THYROID DISORDER
     Dosage: BEEN ON FOR 9 YEARS.
  7. DEPRESSION MED [Concomitant]
     Indication: DEPRESSION
     Dosage: BEEN ON FOR 6 YEARS.

REACTIONS (1)
  - Injection site pain [Recovered/Resolved]
